FAERS Safety Report 14746490 (Version 1)
Quarter: 2018Q2

REPORT INFORMATION
  Report Type: Other
  Country: GB (occurrence: GB)
  Receive Date: 20180411
  Receipt Date: 20180411
  Transmission Date: 20180711
  Serious: Yes (Hospitalization, Other)
  Sender: FDA-Public Use
  Company Number: GB-GLENMARK PHARMACEUTICALS-2018GMK034122

PATIENT

DRUGS (27)
  1. CLONAZEPAM. [Suspect]
     Active Substance: CLONAZEPAM
     Dosage: UNK
     Route: 048
     Dates: start: 2018
  2. PROCYCLIDINE [Suspect]
     Active Substance: PROCYCLIDINE
     Indication: PRODUCT USED FOR UNKNOWN INDICATION
     Dosage: 5 MG, PRN
     Route: 048
  3. SODIUM VALPROATE [Concomitant]
     Active Substance: VALPROATE SODIUM
     Indication: PRODUCT USED FOR UNKNOWN INDICATION
     Dosage: 1 G, BID
     Route: 048
  4. LACTULOSE. [Concomitant]
     Active Substance: LACTULOSE
     Dosage: 10 ML, QD
     Route: 065
  5. HALOPERIDOL. [Suspect]
     Active Substance: HALOPERIDOL
     Indication: PRODUCT USED FOR UNKNOWN INDICATION
     Dosage: 5 MG, BID
     Route: 048
  6. CLOZARIL [Suspect]
     Active Substance: CLOZAPINE
     Indication: PSYCHOTIC DISORDER
     Dosage: UNK ()
     Route: 065
  7. CLONAZEPAM. [Suspect]
     Active Substance: CLONAZEPAM
     Dosage: 1 MG, BID
     Route: 048
     Dates: start: 20180108, end: 201801
  8. SODIUM VALPROATE [Concomitant]
     Active Substance: VALPROATE SODIUM
     Dosage: UNK
     Route: 048
     Dates: start: 2018
  9. LACTULOSE. [Concomitant]
     Active Substance: LACTULOSE
     Indication: PRODUCT USED FOR UNKNOWN INDICATION
     Dosage: 7.5 ML, QD
     Route: 065
  10. SENNA                              /00142201/ [Concomitant]
     Active Substance: SENNA LEAF
     Dosage: UNK
     Route: 048
     Dates: start: 201802
  11. OLANZAPINE. [Suspect]
     Active Substance: OLANZAPINE
     Indication: PRODUCT USED FOR UNKNOWN INDICATION
     Dosage: 5 MG, QD
     Route: 048
     Dates: start: 20180108, end: 20180120
  12. HALOPERIDOL. [Suspect]
     Active Substance: HALOPERIDOL
     Dosage: UNK
     Route: 048
     Dates: start: 2018
  13. LORAZEPAM. [Suspect]
     Active Substance: LORAZEPAM
     Dosage: 2 MG, UNK
     Route: 048
     Dates: start: 20180108, end: 20180120
  14. PROCYCLIDINE [Suspect]
     Active Substance: PROCYCLIDINE
     Dosage: UNK ()
     Route: 048
     Dates: start: 2018
  15. PARACETAMOL [Concomitant]
     Active Substance: ACETAMINOPHEN
     Indication: PRODUCT USED FOR UNKNOWN INDICATION
     Dosage: UNK
     Route: 048
     Dates: start: 2018
  16. PARACETAMOL [Concomitant]
     Active Substance: ACETAMINOPHEN
     Dosage: 1 G, PRN
     Route: 048
  17. FLUTICASONE. [Concomitant]
     Active Substance: FLUTICASONE
     Dosage: 2 DF, BID
     Route: 055
  18. LAMOTRIGINE. [Suspect]
     Active Substance: LAMOTRIGINE
     Dosage: UNK
     Route: 048
     Dates: start: 2018
  19. CLONAZEPAM. [Suspect]
     Active Substance: CLONAZEPAM
     Indication: PRODUCT USED FOR UNKNOWN INDICATION
     Dosage: 1 MG, TID
     Route: 048
     Dates: start: 201801, end: 20180120
  20. OLANZAPINE. [Suspect]
     Active Substance: OLANZAPINE
     Dosage: UNK
     Route: 048
     Dates: start: 2018, end: 20180204
  21. LAMOTRIGINE. [Suspect]
     Active Substance: LAMOTRIGINE
     Indication: PRODUCT USED FOR UNKNOWN INDICATION
     Dosage: 100 MG, BID
     Route: 048
  22. CLOZARIL [Suspect]
     Active Substance: CLOZAPINE
     Indication: SCHIZOPHRENIA
     Dosage: 100 MG, BID
     Route: 048
     Dates: start: 20180123, end: 20180212
  23. LORAZEPAM. [Suspect]
     Active Substance: LORAZEPAM
     Indication: PRODUCT USED FOR UNKNOWN INDICATION
     Dosage: UNK
     Route: 048
     Dates: start: 2018
  24. LACTULOSE. [Concomitant]
     Active Substance: LACTULOSE
     Dosage: 15 ML, BID
     Route: 048
     Dates: start: 20180205
  25. CLOZARIL [Suspect]
     Active Substance: CLOZAPINE
     Indication: PERSONALITY DISORDER
     Dosage: UNK ()
     Route: 065
  26. SENNA                              /00142201/ [Concomitant]
     Active Substance: SENNA LEAF
     Indication: PRODUCT USED FOR UNKNOWN INDICATION
     Dosage: UNK
     Route: 048
  27. FLUTICASONE. [Concomitant]
     Active Substance: FLUTICASONE
     Indication: PRODUCT USED FOR UNKNOWN INDICATION
     Dosage: UNK
     Route: 065
     Dates: start: 2018

REACTIONS (11)
  - Dehydration [Unknown]
  - Malaise [Unknown]
  - Urinary retention [Recovered/Resolved]
  - Vomiting [Unknown]
  - Product use in unapproved indication [Unknown]
  - Acute kidney injury [Recovered/Resolved]
  - Renal impairment [Unknown]
  - Urinary tract infection [Recovered/Resolved]
  - Lethargy [Unknown]
  - Hypophagia [Unknown]
  - Constipation [Recovered/Resolved]

NARRATIVE: CASE EVENT DATE: 20180123
